FAERS Safety Report 25399334 (Version 2)
Quarter: 2025Q3

REPORT INFORMATION
  Report Type: Report from Study
  Country: JP (occurrence: JP)
  Receive Date: 20250605
  Receipt Date: 20250829
  Transmission Date: 20251020
  Serious: Yes (Hospitalization)
  Sender: MITSUBISHI TANABE PHARMA
  Company Number: JP-MTPC-MTPC2025-0010010

PATIENT
  Age: 82 Year
  Sex: Female

DRUGS (26)
  1. RADICAVA ORS [Suspect]
     Active Substance: EDARAVONE
     Indication: Amyotrophic lateral sclerosis
     Dosage: 105 MILLIGRAM, QD
     Route: 048
     Dates: start: 20240710, end: 20240723
  2. RADICAVA ORS [Suspect]
     Active Substance: EDARAVONE
     Indication: Amyotrophic lateral sclerosis
     Dosage: 105 MILLIGRAM, QD
     Route: 048
     Dates: start: 20240710, end: 20240723
  3. RADICAVA ORS [Suspect]
     Active Substance: EDARAVONE
     Dosage: 105 MILLIGRAM, QD
     Route: 048
     Dates: start: 20240807, end: 20240816
  4. RADICAVA ORS [Suspect]
     Active Substance: EDARAVONE
     Dosage: 105 MILLIGRAM, QD
     Route: 048
     Dates: start: 20240807, end: 20240816
  5. RADICAVA ORS [Suspect]
     Active Substance: EDARAVONE
     Dosage: 105 MILLIGRAM, QD
     Route: 048
     Dates: start: 20240904, end: 20240913
  6. RADICAVA ORS [Suspect]
     Active Substance: EDARAVONE
     Dosage: 105 MILLIGRAM, QD
     Route: 048
     Dates: start: 20240904, end: 20240913
  7. RADICAVA ORS [Suspect]
     Active Substance: EDARAVONE
     Dosage: 105 MILLIGRAM, QD
     Route: 048
     Dates: start: 20241002, end: 20241011
  8. RADICAVA ORS [Suspect]
     Active Substance: EDARAVONE
     Dosage: 105 MILLIGRAM, QD
     Route: 048
     Dates: start: 20241002, end: 20241011
  9. RADICAVA ORS [Suspect]
     Active Substance: EDARAVONE
     Dosage: 105 MILLIGRAM, QD
     Route: 048
     Dates: start: 20241030, end: 20241108
  10. RADICAVA ORS [Suspect]
     Active Substance: EDARAVONE
     Dosage: 105 MILLIGRAM, QD
     Route: 048
     Dates: start: 20241030, end: 20241108
  11. RADICAVA ORS [Suspect]
     Active Substance: EDARAVONE
     Dosage: 105 MILLIGRAM, QD
     Route: 048
     Dates: start: 20241127, end: 20241206
  12. RADICAVA ORS [Suspect]
     Active Substance: EDARAVONE
     Dosage: 105 MILLIGRAM, QD
     Route: 048
     Dates: start: 20241127, end: 20241206
  13. RADICAVA ORS [Suspect]
     Active Substance: EDARAVONE
     Dosage: 105 MILLIGRAM, QD
     Route: 048
     Dates: start: 20241225, end: 20250103
  14. RADICAVA ORS [Suspect]
     Active Substance: EDARAVONE
     Dosage: 105 MILLIGRAM, QD
     Route: 048
     Dates: start: 20241225, end: 20250103
  15. RADICAVA ORS [Suspect]
     Active Substance: EDARAVONE
     Dosage: 105 MILLIGRAM, QD
     Route: 048
     Dates: start: 20250122, end: 20250131
  16. RADICAVA ORS [Suspect]
     Active Substance: EDARAVONE
     Dosage: 105 MILLIGRAM, QD
     Route: 048
     Dates: start: 20250122, end: 20250131
  17. RADICAVA ORS [Suspect]
     Active Substance: EDARAVONE
     Dosage: 105 MILLIGRAM, QD
     Route: 048
     Dates: start: 20250219, end: 20250228
  18. RADICAVA ORS [Suspect]
     Active Substance: EDARAVONE
     Dosage: 105 MILLIGRAM, QD
     Route: 048
     Dates: start: 20250219, end: 20250228
  19. RADICAVA ORS [Suspect]
     Active Substance: EDARAVONE
     Dosage: 105 MILLIGRAM, QD
     Route: 048
     Dates: start: 20250319, end: 20250328
  20. RADICAVA ORS [Suspect]
     Active Substance: EDARAVONE
     Dosage: 105 MILLIGRAM, QD
     Route: 048
     Dates: start: 20250319, end: 20250328
  21. RADICAVA ORS [Suspect]
     Active Substance: EDARAVONE
     Dosage: 105 MILLIGRAM, QD
     Route: 048
     Dates: start: 20250416, end: 20250425
  22. RADICAVA ORS [Suspect]
     Active Substance: EDARAVONE
     Dosage: 105 MILLIGRAM, QD
     Route: 048
     Dates: start: 20250416, end: 20250425
  23. RADICAVA ORS [Suspect]
     Active Substance: EDARAVONE
     Dosage: 105 MILLIGRAM, QD
     Route: 048
     Dates: start: 20250514, end: 20250523
  24. RADICAVA ORS [Suspect]
     Active Substance: EDARAVONE
     Dosage: 105 MILLIGRAM, QD
     Route: 048
     Dates: start: 20250514, end: 20250523
  25. RADICAVA ORS [Suspect]
     Active Substance: EDARAVONE
     Dosage: 105 MILLIGRAM, QD
     Dates: start: 20250611, end: 20250620
  26. RADICAVA ORS [Suspect]
     Active Substance: EDARAVONE
     Dosage: 105 MILLIGRAM, QD
     Dates: start: 20250611, end: 20250620

REACTIONS (2)
  - Gastrostomy [Unknown]
  - Dysphagia [Unknown]
